FAERS Safety Report 14577287 (Version 1)
Quarter: 2018Q1

REPORT INFORMATION
  Report Type: Spontaneous
  Country: US (occurrence: US)
  Receive Date: 20180226
  Receipt Date: 20180226
  Transmission Date: 20180509
  Serious: Yes (Other)
  Sender: FDA-Public Use
  Company Number: None

PATIENT
  Age: 22 Year
  Sex: Female
  Weight: 108 kg

DRUGS (1)
  1. DEGREE MOTION SENSE DRYSPRAY (USE-ANTIPERPIRANT) [Suspect]
     Active Substance: ALUMINUM CHLOROHYDRATE
     Indication: HYPERHIDROSIS
     Route: 061

REACTIONS (4)
  - Application site reaction [None]
  - Application site ulcer [None]
  - Application site discolouration [None]
  - Chemical burn [None]

NARRATIVE: CASE EVENT DATE: 20170510
